FAERS Safety Report 15720454 (Version 14)
Quarter: 2019Q4

REPORT INFORMATION
  Report Type: Spontaneous
  Country: US (occurrence: US)
  Receive Date: 20181213
  Receipt Date: 20191203
  Transmission Date: 20200122
  Serious: Yes (Death, Hospitalization, Other)
  Sender: FDA-Public Use
  Company Number: US-ACTELION-A-NJ2018-183607

PATIENT
  Age: 66 Year
  Sex: Male
  Weight: 64.85 kg

DRUGS (8)
  1. VELETRI [Suspect]
     Active Substance: EPOPROSTENOL
     Indication: PULMONARY ARTERIAL HYPERTENSION
     Dosage: 30 NG/KG PER MIN
     Route: 042
  2. OPSUMIT [Suspect]
     Active Substance: MACITENTAN
     Indication: PULMONARY ARTERIAL HYPERTENSION
     Dosage: 10 MG, QD
     Route: 048
  3. VELETRI [Suspect]
     Active Substance: EPOPROSTENOL
     Dosage: 26.7 NG/KG, PER MIN
     Route: 042
  4. VELETRI [Suspect]
     Active Substance: EPOPROSTENOL
     Dosage: 27.5 NG/KG, PER MIN
     Route: 042
  5. ADCIRCA [Concomitant]
     Active Substance: TADALAFIL
  6. VELETRI [Suspect]
     Active Substance: EPOPROSTENOL
     Dosage: 26 NG/KG, PER MIN
     Route: 042
  7. TADALAFIL. [Concomitant]
     Active Substance: TADALAFIL
     Dosage: 20 MG, QD
  8. VELETRI [Suspect]
     Active Substance: EPOPROSTENOL
     Dosage: 20 NG/KG PER MIN
     Route: 042

REACTIONS (24)
  - Liver disorder [Unknown]
  - Skin discomfort [Unknown]
  - Haemoglobin decreased [Unknown]
  - Hernia pain [Not Recovered/Not Resolved]
  - Diarrhoea [Not Recovered/Not Resolved]
  - Ascites [Not Recovered/Not Resolved]
  - Fluid retention [Unknown]
  - Pulmonary hypertension [Unknown]
  - Fall [Unknown]
  - Catheter site pain [Unknown]
  - Dyspnoea [Unknown]
  - Platelet count decreased [Recovering/Resolving]
  - Fluid overload [Unknown]
  - Dyspnoea exertional [Not Recovered/Not Resolved]
  - Weight decreased [Unknown]
  - Hospitalisation [Unknown]
  - Device dislocation [Unknown]
  - Infusion site extravasation [Unknown]
  - Bone pain [Unknown]
  - Hypotension [Fatal]
  - Headache [Not Recovered/Not Resolved]
  - Sluggishness [Unknown]
  - Cardiac failure [Unknown]
  - Abdominal cavity drainage [Unknown]

NARRATIVE: CASE EVENT DATE: 20190515
